FAERS Safety Report 5021117-7 (Version None)
Quarter: 2006Q2

REPORT INFORMATION
  Report Type: 
  Country: None (occurrence: None)
  Receive Date: 20060605
  Receipt Date: 20060525
  Transmission Date: 20061013
  Serious: Yes (Other)
  Sender: FDA-Public Use
  Company Number: 2006068559

PATIENT
  Sex: Female
  Weight: 64.4108 kg

DRUGS (4)
  1. XALATAN [Suspect]
     Indication: GLAUCOMA
     Dosage: 2 DROP (1 D), OPHTHALMIC
     Route: 047
     Dates: start: 19920101
  2. ALL OTHER THERAPEUTIC PRODUCTS (ALL OTHER THERAPEUTIC PRODUCTS) [Concomitant]
  3. BETAGAN [Concomitant]
  4. PILOCARPINE (PILOCARPINE) [Concomitant]

REACTIONS (4)
  - BALANCE DISORDER [None]
  - FATIGUE [None]
  - INTRAOCULAR PRESSURE INCREASED [None]
  - SOMNOLENCE [None]
